FAERS Safety Report 8788785 (Version 2)
Quarter: 2013Q4

REPORT INFORMATION
  Report Type: Spontaneous
  Country: US (occurrence: US)
  Receive Date: 20120916
  Receipt Date: 20131101
  Transmission Date: 20140711
  Serious: No
  Sender: FDA-Public Use
  Company Number: US-009507513-1209USA000078

PATIENT
  Sex: Male

DRUGS (2)
  1. REBETOL [Suspect]
     Indication: HEPATITIS C
     Dosage: UNK
     Dates: start: 19910101, end: 19920101
  2. INTRONA [Suspect]
     Indication: HEPATITIS C
     Dosage: UNK
     Dates: start: 19910101, end: 19920101

REACTIONS (1)
  - Hepatitis C [Unknown]
